FAERS Safety Report 11458812 (Version 1)
Quarter: 2015Q3

REPORT INFORMATION
  Report Type: Spontaneous
  Country: CA (occurrence: CA)
  Receive Date: 20150904
  Receipt Date: 20150904
  Transmission Date: 20151125
  Serious: Yes (Disabling)
  Sender: FDA-Public Use
  Company Number: CA-PFIZER INC-2015275680

PATIENT
  Age: 49 Year
  Sex: Female
  Weight: 57 kg

DRUGS (2)
  1. PREMARIN [Suspect]
     Active Substance: ESTROGENS, CONJUGATED
     Dosage: 0.3 MG (1 CAPLET), 1X/DAY
     Route: 048
     Dates: start: 20150803, end: 20150817
  2. SYNTHROID [Concomitant]
     Active Substance: LEVOTHYROXINE SODIUM
     Dosage: 100 ?G, UNK

REACTIONS (8)
  - Headache [Recovering/Resolving]
  - Dizziness [Recovering/Resolving]
  - Tremor [Recovering/Resolving]
  - Malaise [Recovered/Resolved]
  - Vertigo [Recovered/Resolved]
  - Palpitations [Recovering/Resolving]
  - Nausea [Recovering/Resolving]
  - Product quality issue [Recovered/Resolved]

NARRATIVE: CASE EVENT DATE: 20150813
